FAERS Safety Report 16456047 (Version 1)
Quarter: 2019Q2

REPORT INFORMATION
  Report Type: Spontaneous
  Country: US (occurrence: US)
  Receive Date: 20190620
  Receipt Date: 20190620
  Transmission Date: 20190711
  Serious: No
  Sender: FDA-Public Use
  Company Number: US-AMGEN-USASP2019096804

PATIENT
  Age: 57 Year
  Sex: Female

DRUGS (3)
  1. ENBREL [Suspect]
     Active Substance: ETANERCEPT
     Indication: RHEUMATOID ARTHRITIS
     Dosage: 50 MILLIGRAM, QWK
     Route: 065
     Dates: start: 20190531
  2. CELEBREX [Concomitant]
     Active Substance: CELECOXIB
     Dosage: UNK
  3. FOLIC ACID. [Concomitant]
     Active Substance: FOLIC ACID
     Dosage: UNK

REACTIONS (6)
  - Injection site swelling [Unknown]
  - Injection site warmth [Unknown]
  - Injection site erythema [Not Recovered/Not Resolved]
  - Injection site pruritus [Unknown]
  - Injection site inflammation [Unknown]
  - Injection site pain [Unknown]

NARRATIVE: CASE EVENT DATE: 20190531
